FAERS Safety Report 7318853-6 (Version None)
Quarter: 2011Q1

REPORT INFORMATION
  Report Type: 
  Country: None (occurrence: None)
  Receive Date: 20110228
  Receipt Date: 20101025
  Transmission Date: 20110831
  Serious: No
  Sender: FDA-Public Use
  Company Number: A0889596A

PATIENT
  Sex: Female

DRUGS (1)
  1. IMITREX [Suspect]
     Route: 065

REACTIONS (1)
  - ADVERSE EVENT [None]
